FAERS Safety Report 7753902-2 (Version None)
Quarter: 2011Q3

REPORT INFORMATION
  Report Type: 
  Country: None (occurrence: None)
  Receive Date: 20110915
  Receipt Date: 20110913
  Transmission Date: 20111222
  Serious: Yes (Death, Other)
  Sender: FDA-Public Use
  Company Number: CH-PFIZER INC-2002121255CH

PATIENT
  Age: 80 Year
  Sex: Male
  Weight: 70 kg

DRUGS (10)
  1. DIGOXIN [Concomitant]
     Dosage: UNK
     Dates: end: 20020717
  2. INSULIN [Concomitant]
     Dosage: UNK
     Dates: end: 20020717
  3. ZYVOX [Suspect]
     Indication: STAPHYLOCOCCAL INFECTION
     Dosage: 600 MG, 2X/DAY
     Route: 048
     Dates: start: 20020623, end: 20020716
  4. NIZORAL [Concomitant]
     Dosage: UNK
     Dates: start: 20020712, end: 20020717
  5. NITRODERM [Concomitant]
     Dosage: UNK
     Dates: end: 20020717
  6. ACETAMINOPHEN [Concomitant]
     Dosage: UNK
     Dates: start: 20020615, end: 20020626
  7. TORSEMIDE [Concomitant]
  8. CITALOPRAM HYDROBROMIDE [Suspect]
     Indication: DEPRESSION
     Dosage: 20 MG, 1X/DAY
     Route: 048
  9. PREDNISONE [Concomitant]
     Dosage: UNK
     Dates: end: 20020717
  10. OXAZEPAM [Concomitant]
     Dosage: UNK
     Dates: end: 20020717

REACTIONS (5)
  - CARDIAC ARREST [None]
  - SEROTONIN SYNDROME [None]
  - RENAL FAILURE [None]
  - ANAEMIA [None]
  - THROMBOCYTOPENIA [None]
